FAERS Safety Report 25287861 (Version 1)
Quarter: 2025Q2

REPORT INFORMATION
  Report Type: Spontaneous
  Country: GB (occurrence: GB)
  Receive Date: 20250509
  Receipt Date: 20250509
  Transmission Date: 20250717
  Serious: Yes (Other)
  Sender: MYLAN
  Company Number: GB-MHRA-TPP4461712C27924509YC1746202082259

PATIENT
  Age: 23 Year
  Sex: Female
  Weight: 26 kg

DRUGS (3)
  1. PENICILLAMINE [Suspect]
     Active Substance: PENICILLAMINE
     Indication: Product used for unknown indication
  2. GENTAMICIN [Concomitant]
     Active Substance: GENTAMICIN
  3. CLARITHROMYCIN [Concomitant]
     Active Substance: CLARITHROMYCIN

REACTIONS (3)
  - Swelling face [Unknown]
  - Rash [Recovered/Resolved]
  - Drug hypersensitivity [Unknown]
